FAERS Safety Report 19878155 (Version 2)
Quarter: 2022Q4

REPORT INFORMATION
  Report Type: Spontaneous
  Country: US (occurrence: US)
  Receive Date: 20210924
  Receipt Date: 20221018
  Transmission Date: 20230112
  Serious: No
  Sender: FDA-Public Use
  Company Number: US-CELLTRION INC.-2021US003718

PATIENT

DRUGS (2)
  1. INFLIXIMAB [Suspect]
     Active Substance: INFLIXIMAB
     Indication: Cardiac sarcoidosis
     Dosage: STANDARD DOSING FREQUENCY WITH WEIGHT-BASED DOSING (3 MG/KG, 5 MG/KG, 6 MG/KG OR 10 MG/KG)
     Route: 042
  2. PREDNISONE [Suspect]
     Active Substance: PREDNISONE
     Indication: Cardiac sarcoidosis
     Dosage: DOSE WAS TYPICALLY DECREASED BY 5-10 MG APPROXIMATELY EVERY 4 WEEKS BASED ON CLINICAL AND IMAGING ST

REACTIONS (3)
  - Urinary tract infection [Unknown]
  - Off label use [Unknown]
  - Drug effective for unapproved indication [Unknown]
